FAERS Safety Report 9633083 (Version 4)
Quarter: 2013Q4

REPORT INFORMATION
  Report Type: Spontaneous
  Country: JP (occurrence: JP)
  Receive Date: 20131018
  Receipt Date: 20131231
  Transmission Date: 20140711
  Serious: Yes (Life-Threatening, Hospitalization, Disabling, Other)
  Sender: FDA-Public Use
  Company Number: JP-ASTRAZENECA-2013SE76718

PATIENT
  Age: 14064 Day
  Sex: Male
  Weight: 63.6 kg

DRUGS (5)
  1. SEROQUEL [Suspect]
     Indication: SCHIZOPHRENIA
     Route: 048
     Dates: start: 20111201, end: 20111202
  2. SERENACE [Suspect]
     Indication: SCHIZOPHRENIA
     Route: 041
     Dates: start: 20111204, end: 20111206
  3. TETRAMIDE [Concomitant]
     Indication: DEPRESSION
     Dates: start: 20111130, end: 20111201
  4. DEPAS [Concomitant]
     Indication: DEPRESSION
  5. RISPERDAL [Concomitant]
     Indication: SCHIZOPHRENIA
     Route: 048
     Dates: start: 20111204, end: 20111204

REACTIONS (3)
  - Cardio-respiratory arrest [Unknown]
  - Hypoxic-ischaemic encephalopathy [Unknown]
  - Neuroleptic malignant syndrome [Recovered/Resolved with Sequelae]
